FAERS Safety Report 9400165 (Version 1)
Quarter: 2013Q3

REPORT INFORMATION
  Report Type: Spontaneous
  Country: US (occurrence: US)
  Receive Date: 20130715
  Receipt Date: 20130715
  Transmission Date: 20140515
  Serious: No
  Sender: FDA-Public Use
  Company Number: US-PFIZER INC-2013204734

PATIENT
  Age: 49 Year
  Sex: Female
  Weight: 61.22 kg

DRUGS (2)
  1. ATORVASTATIN CALCIUM [Suspect]
     Indication: BLOOD CHOLESTEROL INCREASED
     Dosage: UNK
     Dates: start: 2012
  2. CRESTOR [Suspect]
     Indication: BLOOD CHOLESTEROL INCREASED
     Dosage: UNK

REACTIONS (4)
  - Asthenia [Recovered/Resolved]
  - Nausea [Recovered/Resolved]
  - Influenza [Recovered/Resolved]
  - Malaise [Recovered/Resolved]
